FAERS Safety Report 4541081-4 (Version None)
Quarter: 2004Q4

REPORT INFORMATION
  Report Type: 
  Country: None (occurrence: None)
  Receive Date: 20041228
  Receipt Date: 20041203
  Transmission Date: 20050328
  Serious: Yes (Death, Life-Threatening)
  Sender: FDA-Public Use
  Company Number: A04200401172

PATIENT
  Age: 74 Year
  Sex: Female

DRUGS (9)
  1. PLAVIX [Suspect]
     Indication: ATRIAL FIBRILLATION
     Dosage: 75 MG OD, ORAL
     Route: 048
     Dates: start: 20041001, end: 20041121
  2. NEXIUM [Concomitant]
  3. BELOC ZOK MITE (METOPROLOL SUCCINATE) [Concomitant]
  4. ANDANTE (BUNAZOSIN HYDROCHLORIDE) [Concomitant]
  5. NITRO SPRAY (GLYCERYL TRINITRATE) [Concomitant]
  6. L-THYROXIN (LEVOTHYROXINE) [Concomitant]
  7. PREDNISOLONE [Concomitant]
  8. LOESFERRON (FERROUS GLUCONATE) [Concomitant]
  9. ACETYLCYSTEINE [Concomitant]

REACTIONS (3)
  - AGRANULOCYTOSIS [None]
  - CARDIAC FAILURE [None]
  - INFECTION [None]
